FAERS Safety Report 9253675 (Version 1)
Quarter: 2013Q2

REPORT INFORMATION
  Report Type: Spontaneous
  Country: GB (occurrence: GB)
  Receive Date: 20130425
  Receipt Date: 20130425
  Transmission Date: 20140414
  Serious: Yes (Other)
  Sender: FDA-Public Use
  Company Number: GB-009507513-1304GBR014997

PATIENT
  Age: 28 Year
  Sex: Female
  Weight: 61 kg

DRUGS (1)
  1. NEXPLANON [Suspect]
     Indication: CONTRACEPTION
     Dosage: UNK
     Route: 059

REACTIONS (5)
  - Skin hypertrophy [Recovered/Resolved]
  - Implant site irritation [Recovered/Resolved]
  - Implant site pruritus [Recovered/Resolved]
  - Scar [Recovered/Resolved]
  - Device difficult to use [Unknown]
